FAERS Safety Report 20629440 (Version 2)
Quarter: 2022Q2

REPORT INFORMATION
  Report Type: Report from Study
  Country: JP (occurrence: JP)
  Receive Date: 20220323
  Receipt Date: 20220412
  Transmission Date: 20220721
  Serious: Yes (Hospitalization)
  Sender: FDA-Public Use
  Company Number: JP-BIOGEN-2022BI01106215

PATIENT
  Age: 3 Year
  Sex: Male
  Weight: 9.4 kg

DRUGS (7)
  1. SPINRAZA [Suspect]
     Active Substance: NUSINERSEN
     Indication: Spinal muscular atrophy
     Route: 037
  2. SPINRAZA [Suspect]
     Active Substance: NUSINERSEN
     Route: 037
     Dates: start: 20210420
  3. HYDROXYZINE HYDROCHLORIDE [Concomitant]
     Active Substance: HYDROXYZINE HYDROCHLORIDE
     Indication: Anaesthesia procedure
     Route: 042
  4. MIDAZOLAM [Concomitant]
     Active Substance: MIDAZOLAM
     Indication: Anaesthesia procedure
     Dosage: 2-3 MG/DAY
     Route: 042
     Dates: end: 20201215
  5. EMLA [Concomitant]
     Active Substance: LIDOCAINE\PRILOCAINE
     Indication: Anaesthesia procedure
     Dosage: DAILY DOSE: UNSPECIFIED
     Route: 062
  6. BIO-THREE [Concomitant]
     Active Substance: HERBALS
     Indication: Spinal muscular atrophy
     Route: 065
  7. THIOPENTAL [Concomitant]
     Active Substance: THIOPENTAL
     Indication: Anaesthesia procedure
     Dosage: 20-30 MG/DAY
     Route: 042

REACTIONS (3)
  - Cyclic vomiting syndrome [Recovered/Resolved]
  - Pneumonia aspiration [Recovered/Resolved]
  - Gastrointestinal mucosal disorder [Recovered/Resolved]

NARRATIVE: CASE EVENT DATE: 20211224
